FAERS Safety Report 7130161-5 (Version None)
Quarter: 2010Q4

REPORT INFORMATION
  Report Type: 
  Country: None (occurrence: None)
  Receive Date: 20101201
  Receipt Date: 20101126
  Transmission Date: 20110411
  Serious: Yes (Death, Other)
  Sender: FDA-Public Use
  Company Number: JP-CELGENEUS-087-21880-10111728

PATIENT
  Sex: Female
  Weight: 39 kg

DRUGS (5)
  1. REVLIMID [Suspect]
     Indication: MULTIPLE MYELOMA
     Route: 048
     Dates: start: 20101111, end: 20101113
  2. LENADEX [Suspect]
     Indication: MULTIPLE MYELOMA
     Route: 048
     Dates: start: 20101111, end: 20101111
  3. TAKEPRON [Concomitant]
     Route: 048
     Dates: start: 20101111, end: 20101111
  4. DUROTEP [Concomitant]
     Route: 062
     Dates: start: 20101111, end: 20101113
  5. AMLODIPINE [Concomitant]
     Route: 048
     Dates: start: 20101111, end: 20101113

REACTIONS (5)
  - BACTERIAL SEPSIS [None]
  - HYPERKALAEMIA [None]
  - HYPOGLYCAEMIA [None]
  - NEUTROPENIA [None]
  - THROMBOCYTOPENIA [None]
